FAERS Safety Report 24431474 (Version 4)
Quarter: 2025Q2

REPORT INFORMATION
  Report Type: Report from Study
  Country: US (occurrence: US)
  Receive Date: 20241014
  Receipt Date: 20250418
  Transmission Date: 20250716
  Serious: Yes (Other)
  Sender: ROCHE
  Company Number: US-ROCHE-10000099633

PATIENT
  Age: 80 Year
  Sex: Male

DRUGS (3)
  1. ERIVEDGE [Suspect]
     Active Substance: VISMODEGIB
     Indication: Basal cell carcinoma
     Route: 048
     Dates: start: 20241014
  2. METOPROLOL [Concomitant]
     Active Substance: METOPROLOL
  3. SPIRONOLACTONE [Concomitant]
     Active Substance: SPIRONOLACTONE

REACTIONS (4)
  - Deafness [Not Recovered/Not Resolved]
  - Fatigue [Unknown]
  - Muscle spasms [Unknown]
  - Corrective lens user [Unknown]

NARRATIVE: CASE EVENT DATE: 20241021
